FAERS Safety Report 5015284-9 (Version None)
Quarter: 2006Q2

REPORT INFORMATION
  Report Type: 
  Country: None (occurrence: None)
  Receive Date: 20060601
  Receipt Date: 20060519
  Transmission Date: 20061013
  Serious: Yes (Life-Threatening, Hospitalization)
  Sender: FDA-Public Use
  Company Number: JP-BRISTOL-MYERS SQUIBB COMPANY-13392949

PATIENT
  Age: 73 Year
  Sex: Female

DRUGS (5)
  1. GATIFLOXACIN [Suspect]
     Indication: URINARY TRACT INFECTION
     Dosage: THERAPY STOPPED ON 18-MAR-2006 AND RESTARTED ON 18-APR-2006 AT 400 MG DAILY.
     Route: 048
     Dates: start: 20060310, end: 20060422
  2. MEROPEN [Suspect]
     Indication: URINARY TRACT INFECTION
     Route: 041
  3. POLARAMINE [Suspect]
     Route: 048
  4. RIMATIL [Concomitant]
     Indication: RHEUMATOID ARTHRITIS
     Dates: start: 19900101
  5. PREDNISOLONE [Concomitant]
     Indication: RHEUMATOID ARTHRITIS

REACTIONS (5)
  - COUGH [None]
  - HAEMORRHAGE [None]
  - MALAISE [None]
  - PLATELET COUNT DECREASED [None]
  - PYREXIA [None]
